FAERS Safety Report 7139281-2 (Version None)
Quarter: 2010Q4

REPORT INFORMATION
  Report Type: 
  Country: None (occurrence: None)
  Receive Date: 20101206
  Receipt Date: 20101005
  Transmission Date: 20110411
  Serious: No
  Sender: FDA-Public Use
  Company Number: A0859184A

PATIENT
  Age: 50 Year
  Sex: Female
  Weight: 67.7 kg

DRUGS (1)
  1. LAMICTAL [Suspect]
     Dosage: 100MG AT NIGHT
     Route: 065
     Dates: start: 20100203, end: 20100401

REACTIONS (2)
  - DERMATITIS ALLERGIC [None]
  - DRUG HYPERSENSITIVITY [None]
